FAERS Safety Report 22604823 (Version 1)
Quarter: 2023Q2

REPORT INFORMATION
  Report Type: Spontaneous
  Country: SI (occurrence: SI)
  Receive Date: 20230615
  Receipt Date: 20230615
  Transmission Date: 20230721
  Serious: Yes (Hospitalization, Other)
  Sender: FDA-Public Use
  Company Number: SI-002147023-NVSC2023SI121996

PATIENT
  Age: 70 Year
  Sex: Male

DRUGS (8)
  1. OXALIPLATIN [Suspect]
     Active Substance: OXALIPLATIN
     Indication: Neoplasm
     Dosage: UNK (12 CYCLES)
     Route: 065
     Dates: start: 201911
  2. OXALIPLATIN [Suspect]
     Active Substance: OXALIPLATIN
     Indication: Pancreatic carcinoma
  3. OXALIPLATIN [Suspect]
     Active Substance: OXALIPLATIN
     Indication: Adenocarcinoma
  4. FLUOROURACIL [Suspect]
     Active Substance: FLUOROURACIL
     Indication: Adenocarcinoma
     Dosage: UNK (12 CYCLES, FOLFOX))
     Route: 065
     Dates: start: 201911
  5. FLUOROURACIL [Suspect]
     Active Substance: FLUOROURACIL
     Indication: Metastases to liver
     Dosage: UNK (FOLFIRI)
     Route: 065
     Dates: start: 202103
  6. FLUOROURACIL [Suspect]
     Active Substance: FLUOROURACIL
     Indication: Neoplasm
     Dosage: UNK (FOLFIRI)
     Route: 065
     Dates: start: 202210
  7. FLUOROURACIL [Suspect]
     Active Substance: FLUOROURACIL
     Indication: Pancreatic carcinoma
     Dosage: UNK (MAINTENANCE)
     Route: 065
  8. CETUXIMAB [Concomitant]
     Active Substance: CETUXIMAB
     Indication: Product used for unknown indication
     Dosage: UNK (12 CYCLES)
     Route: 065
     Dates: start: 201911

REACTIONS (11)
  - Transitional cell carcinoma [Unknown]
  - Metastases to liver [Unknown]
  - Urinoma [Unknown]
  - Cardiac failure [Unknown]
  - Renal impairment [Unknown]
  - Neutropenia [Unknown]
  - Blood iron decreased [Unknown]
  - Transferrin saturation decreased [Unknown]
  - Microcytic anaemia [Unknown]
  - Bladder hypertrophy [Unknown]
  - Infection [Unknown]

NARRATIVE: CASE EVENT DATE: 20210301
